FAERS Safety Report 22532462 (Version 1)
Quarter: 2023Q2

REPORT INFORMATION
  Report Type: Report from Study
  Country: CA (occurrence: CA)
  Receive Date: 20230607
  Receipt Date: 20230607
  Transmission Date: 20230722
  Serious: Yes (Other)
  Sender: FDA-Public Use
  Company Number: CA-PFIZER INC-2020109657

PATIENT
  Age: 67 Year
  Sex: Female

DRUGS (2)
  1. LORLATINIB [Suspect]
     Active Substance: LORLATINIB
     Dosage: UNK
     Route: 065
  2. ALECTINIB [Suspect]
     Active Substance: ALECTINIB
     Indication: Non-small cell lung cancer stage IV
     Dosage: 450 MG, 2X/DAY
     Route: 048
     Dates: start: 20180723, end: 20190903

REACTIONS (3)
  - Asthenia [Unknown]
  - Diarrhoea [Unknown]
  - Pulmonary embolism [Unknown]
